FAERS Safety Report 19453914 (Version 1)
Quarter: 2021Q2

REPORT INFORMATION
  Report Type: Spontaneous
  Country: CH (occurrence: CH)
  Receive Date: 20210623
  Receipt Date: 20210623
  Transmission Date: 20210717
  Serious: Yes (Hospitalization)
  Sender: FDA-Public Use
  Company Number: CH-AMERICAN REGENT INC-2021001571

PATIENT
  Age: 42 Year
  Sex: Female

DRUGS (1)
  1. FERINJECT [Suspect]
     Active Substance: FERRIC CARBOXYMALTOSE
     Indication: PRODUCT USED FOR UNKNOWN INDICATION
     Dosage: UNSPECIFIED DOSE, 1 TOTAL
     Dates: start: 20190510, end: 20190510

REACTIONS (1)
  - Pseudoallergic reaction [Recovered/Resolved]

NARRATIVE: CASE EVENT DATE: 20190510
